FAERS Safety Report 8948438 (Version 2)
Quarter: 2012Q4

REPORT INFORMATION
  Report Type: Report from Study
  Country: TW (occurrence: TW)
  Receive Date: 20121206
  Receipt Date: 20121214
  Transmission Date: 20130627
  Serious: Yes (Hospitalization)
  Sender: FDA-Public Use
  Company Number: PHHY2012TW111249

PATIENT
  Age: 81 Year
  Sex: Female
  Weight: 60 kg

DRUGS (2)
  1. ACLASTA/ZOLEDRONATE [Suspect]
     Indication: OSTEOPOROSIS
     Dosage: 5 mg
     Route: 042
     Dates: start: 20100827
  2. ACLASTA/ZOLEDRONATE [Suspect]
     Dosage: 5 mg
     Route: 042
     Dates: start: 20121001

REACTIONS (4)
  - Fall [Recovered/Resolved]
  - Lumbar vertebral fracture [Recovered/Resolved]
  - Wound complication [Recovered/Resolved]
  - Hypotension [Recovered/Resolved]
